FAERS Safety Report 14961209 (Version 2)
Quarter: 2018Q2

REPORT INFORMATION
  Report Type: Report from Study
  Country: CO (occurrence: CO)
  Receive Date: 20180601
  Receipt Date: 20180614
  Transmission Date: 20180711
  Serious: Yes (Death, Hospitalization, Other)
  Sender: FDA-Public Use
  Company Number: CO-BRISTOL-MYERS SQUIBB COMPANY-BMS-2018-015915

PATIENT
  Age: 32 Year
  Sex: Male

DRUGS (1)
  1. NIVOLUMAB [Suspect]
     Active Substance: NIVOLUMAB
     Indication: LUNG NEOPLASM MALIGNANT
     Dosage: 279 MG, Q2WK
     Route: 042
     Dates: start: 20180209, end: 20180510

REACTIONS (12)
  - Pleural effusion [Recovering/Resolving]
  - Peripheral swelling [Recovering/Resolving]
  - Respiratory arrest [Fatal]
  - Fluid retention [Recovering/Resolving]
  - Discomfort [Recovering/Resolving]
  - Headache [Unknown]
  - Diarrhoea [Unknown]
  - Vomiting [Unknown]
  - Ascites [Recovering/Resolving]
  - Back pain [Recovering/Resolving]
  - Asthenia [Unknown]
  - Decreased appetite [Recovering/Resolving]

NARRATIVE: CASE EVENT DATE: 20180210
